FAERS Safety Report 21271721 (Version 2)
Quarter: 2022Q3

REPORT INFORMATION
  Report Type: Report from Study
  Country: DE (occurrence: DE)
  Receive Date: 20220830
  Receipt Date: 20220908
  Transmission Date: 20221026
  Serious: Yes (Hospitalization, Other)
  Sender: FDA-Public Use
  Company Number: DE-BRISTOL-MYERS SQUIBB COMPANY-2022-094754

PATIENT
  Age: 62 Year
  Sex: Male
  Weight: 74 kg

DRUGS (16)
  1. CISPLATIN [Suspect]
     Active Substance: CISPLATIN
     Indication: Transitional cell carcinoma
     Dosage: MOST RECENT DOSE ON 23-MAR-2022
     Route: 042
     Dates: start: 20211208
  2. GEMCITABINE HYDROCHLORIDE [Suspect]
     Active Substance: GEMCITABINE HYDROCHLORIDE
     Indication: Transitional cell carcinoma
     Dosage: MOST RECENT DOSE ON 30-MAR-2022
     Route: 042
     Dates: start: 20211208
  3. AMLODIPINE [Concomitant]
     Active Substance: AMLODIPINE BESYLATE
     Indication: Product used for unknown indication
     Route: 065
  4. MIRTAZAPINE [Concomitant]
     Active Substance: MIRTAZAPINE
     Indication: Product used for unknown indication
     Dosage: ONGOING
     Route: 065
  5. PANTOZOL [Concomitant]
     Active Substance: PANTOPRAZOLE SODIUM
     Indication: Product used for unknown indication
     Dosage: ONGOING
     Route: 065
     Dates: start: 20211230
  6. JANUVIA [Concomitant]
     Active Substance: SITAGLIPTIN PHOSPHATE
     Indication: Product used for unknown indication
     Route: 065
     Dates: start: 20220119
  7. ZOFRAN [Concomitant]
     Active Substance: ONDANSETRON HYDROCHLORIDE
     Indication: Product used for unknown indication
     Dosage: ONGOING?AS NEED
     Route: 065
     Dates: start: 20220119
  8. MCP [Concomitant]
     Active Substance: METOCLOPRAMIDE HYDROCHLORIDE
     Indication: Product used for unknown indication
     Dosage: ONGOING?AS NEED
     Route: 065
     Dates: start: 20220119
  9. INSULIN DEGLUDEC [Concomitant]
     Active Substance: INSULIN DEGLUDEC
     Indication: Product used for unknown indication
     Dosage: 1 DOSAGE FORM=14 IE
     Route: 065
     Dates: start: 20220413
  10. APIXABAN [Concomitant]
     Active Substance: APIXABAN
     Indication: Product used for unknown indication
     Dosage: ONGOING
     Route: 065
     Dates: start: 20220511
  11. MAGNESIUM [Concomitant]
     Active Substance: MAGNESIUM
     Indication: Product used for unknown indication
     Route: 065
     Dates: start: 20220608, end: 20220803
  12. MAGNESIUM [Concomitant]
     Active Substance: MAGNESIUM
     Dosage: ONGING
     Dates: start: 20220803
  13. LEVOTHYROXINE SODIUM [Concomitant]
     Active Substance: LEVOTHYROXINE SODIUM
     Indication: Product used for unknown indication
     Route: 065
     Dates: start: 20220608, end: 20220803
  14. LEVOTHYROXINE SODIUM [Concomitant]
     Active Substance: LEVOTHYROXINE SODIUM
     Dosage: ONGOING
     Route: 065
     Dates: start: 20220803
  15. SODIUM CHLORIDE [Concomitant]
     Active Substance: SODIUM CHLORIDE
     Indication: Product used for unknown indication
     Route: 065
  16. TORSEMIDE [Concomitant]
     Active Substance: TORSEMIDE
     Indication: Product used for unknown indication
     Route: 065
     Dates: start: 20220706, end: 20220803

REACTIONS (1)
  - Polyserositis [Recovered/Resolved]

NARRATIVE: CASE EVENT DATE: 20220808
